FAERS Safety Report 6827156-5 (Version None)
Quarter: 2010Q3

REPORT INFORMATION
  Report Type: 
  Country: None (occurrence: None)
  Receive Date: 20100709
  Receipt Date: 20100629
  Transmission Date: 20110219
  Serious: Yes (Disabling, Other)
  Sender: FDA-Public Use
  Company Number: SE-BRISTOL-MYERS SQUIBB COMPANY-15183270

PATIENT
  Age: 70 Year
  Sex: Female

DRUGS (1)
  1. GLUCOPHAGE [Suspect]
     Dates: start: 20100208

REACTIONS (9)
  - ABDOMINAL PAIN LOWER [None]
  - DECREASED APPETITE [None]
  - GAIT DISTURBANCE [None]
  - HEARING IMPAIRED [None]
  - MEDICATION ERROR [None]
  - MUSCLE ATROPHY [None]
  - OEDEMA PERIPHERAL [None]
  - SCAB [None]
  - WEIGHT DECREASED [None]
